FAERS Safety Report 19860464 (Version 1)
Quarter: 2021Q3

REPORT INFORMATION
  Report Type: Spontaneous
  Country: US (occurrence: US)
  Receive Date: 20210918
  Receipt Date: 20210918
  Transmission Date: 20211014
  Serious: Yes (Hospitalization)
  Sender: FDA-Public Use
  Company Number: None

PATIENT
  Sex: Male
  Weight: 85.1 kg

DRUGS (8)
  1. CYTARABINE. [Suspect]
     Active Substance: CYTARABINE
  2. THIOGUANINE (6?TG) [Suspect]
     Active Substance: THIOGUANINE ANHYDROUS
     Dates: end: 20210915
  3. DAUNORUBICIN [Suspect]
     Active Substance: DAUNORUBICIN
     Dates: end: 20210812
  4. DEXAMETHASONE. [Concomitant]
     Active Substance: DEXAMETHASONE
     Dates: end: 20210818
  5. METHOTREXATE. [Suspect]
     Active Substance: METHOTREXATE
     Dates: end: 20210902
  6. VINCRISTINE SULFATE. [Suspect]
     Active Substance: VINCRISTINE SULFATE
     Dates: end: 20210812
  7. ONCASPAR [Suspect]
     Active Substance: PEGASPARGASE
     Dates: end: 20210801
  8. CYCLOPHOSPHAMIDE. [Suspect]
     Active Substance: CYCLOPHOSPHAMIDE
     Dates: end: 20210902

REACTIONS (15)
  - Ear pain [None]
  - Blood fibrinogen increased [None]
  - Blood creatinine decreased [None]
  - Blood magnesium decreased [None]
  - Febrile neutropenia [None]
  - C-reactive protein increased [None]
  - Nasal septum deviation [None]
  - Blood bilirubin increased [None]
  - Cough [None]
  - Haemoglobin decreased [None]
  - Chills [None]
  - Headache [None]
  - Sinusitis [None]
  - White blood cell count increased [None]
  - Platelet count decreased [None]

NARRATIVE: CASE EVENT DATE: 20210916
